FAERS Safety Report 12880570 (Version 2)
Quarter: 2017Q1

REPORT INFORMATION
  Report Type: Spontaneous
  Country: IT (occurrence: IT)
  Receive Date: 20161025
  Receipt Date: 20170126
  Transmission Date: 20170428
  Serious: Yes (Other)
  Sender: FDA-Public Use
  Company Number: IT-PFIZER INC-2016492921

PATIENT
  Age: 45 Year
  Sex: Female

DRUGS (4)
  1. CAMPRAL [Suspect]
     Active Substance: ACAMPROSATE CALCIUM
     Indication: ALCOHOLISM
     Dosage: 999 MG, TOTAL
     Route: 048
     Dates: start: 20160422, end: 20160422
  2. ALPRAZOLAM. [Suspect]
     Active Substance: ALPRAZOLAM
     Indication: DEPRESSION
     Dosage: 3 MG, TOTAL
     Route: 048
     Dates: start: 20160422, end: 20160422
  3. TRITTICO [Suspect]
     Active Substance: TRAZODONE HYDROCHLORIDE
     Indication: DEPRESSION
     Dosage: 150 MG, TOTAL
     Route: 048
     Dates: start: 20160422, end: 20160422
  4. FLURAZEPAMI MONOHYDROCHLORIDUM [Suspect]
     Active Substance: FLURAZEPAM HYDROCHLORIDE
     Indication: DEPRESSION
     Dosage: 60 MG, TOTAL
     Route: 048
     Dates: start: 20160422, end: 20160422

REACTIONS (2)
  - Drug abuse [Recovered/Resolved]
  - Disturbance in attention [Recovered/Resolved]

NARRATIVE: CASE EVENT DATE: 20160422
